FAERS Safety Report 6284959-6 (Version None)
Quarter: 2009Q3

REPORT INFORMATION
  Report Type: 
  Country: None (occurrence: None)
  Receive Date: 20090727
  Receipt Date: 20090720
  Transmission Date: 20100115
  Serious: Yes (Hospitalization)
  Sender: FDA-Public Use
  Company Number: US-B.I. PHARMACEUTICALS,INC./RIDGEFIELD-2009-BP-07575BP

PATIENT
  Sex: Male
  Weight: 59 kg

DRUGS (9)
  1. FLOMAX [Suspect]
     Indication: URINARY RETENTION
     Dosage: 0.8 MG
  2. COUMADIN [Concomitant]
  3. ZOCOR [Concomitant]
     Dosage: 20 MG
  4. LISINOPRIL [Concomitant]
     Dosage: 5 MG
  5. DILTIAZEM [Concomitant]
     Dosage: 360 MG
  6. POTASSIUM CHLORIDE [Concomitant]
     Dosage: 10 MEQ
  7. LASIX [Concomitant]
     Dosage: 20 MG
  8. COREG [Concomitant]
     Dosage: 6.25 MG
  9. BACTRIM DS [Concomitant]

REACTIONS (8)
  - DIZZINESS [None]
  - FALL [None]
  - FEELING HOT [None]
  - HEART RATE DECREASED [None]
  - INFLUENZA LIKE ILLNESS [None]
  - NAUSEA [None]
  - ORTHOSTATIC HYPOTENSION [None]
  - TREMOR [None]
